FAERS Safety Report 13810167 (Version 7)
Quarter: 2017Q4

REPORT INFORMATION
  Report Type: Spontaneous
  Country: US (occurrence: US)
  Receive Date: 20170728
  Receipt Date: 20171205
  Transmission Date: 20180320
  Serious: Yes (Death, Hospitalization, Other)
  Sender: FDA-Public Use
  Company Number: US-GLAXOSMITHKLINE-US2017GSK117472

PATIENT
  Age: 57 Year
  Sex: Female
  Weight: 78.7 kg

DRUGS (6)
  1. FLOLAN [Suspect]
     Active Substance: EPOPROSTENOL SODIUM
     Indication: PULMONARY ARTERIAL HYPERTENSION
     Dosage: 30 NG/KG/MIN, CO
     Route: 042
     Dates: start: 20090522
  2. FLOLAN [Suspect]
     Active Substance: EPOPROSTENOL SODIUM
     Indication: PULMONARY ARTERIAL HYPERTENSION
     Dosage: UNK
     Route: 042
     Dates: start: 20090522
  3. OPSUMIT [Concomitant]
     Active Substance: MACITENTAN
  4. FLOLAN [Suspect]
     Active Substance: EPOPROSTENOL SODIUM
     Dosage: 30 DF, CO
     Route: 042
     Dates: start: 20090522
  5. REVATIO [Concomitant]
     Active Substance: SILDENAFIL CITRATE
  6. FLOLAN [Suspect]
     Active Substance: EPOPROSTENOL SODIUM
     Dosage: UNK

REACTIONS (15)
  - Foot operation [Unknown]
  - Osteomyelitis [Unknown]
  - Limb injury [Unknown]
  - Death [Fatal]
  - Sepsis [Unknown]
  - Dialysis [Unknown]
  - Hospitalisation [Unknown]
  - Amputation [Unknown]
  - Incisional drainage [Unknown]
  - Asthenia [Unknown]
  - Hypotension [Unknown]
  - Osteomyelitis bacterial [Unknown]
  - Staphylococcal infection [Unknown]
  - Skin ulcer [Unknown]
  - Fluid retention [Unknown]

NARRATIVE: CASE EVENT DATE: 2016
